FAERS Safety Report 4576709-6 (Version None)
Quarter: 2005Q1

REPORT INFORMATION
  Report Type: 
  Country: None (occurrence: None)
  Receive Date: 20050207
  Receipt Date: 20050120
  Transmission Date: 20050727
  Serious: Yes (Other)
  Sender: FDA-Public Use
  Company Number: DSA_25668_2005

PATIENT
  Sex: Male

DRUGS (3)
  1. CARDIZEM LA [Suspect]
     Dosage: 240 MG Q DAY PO
     Route: 048
     Dates: end: 20050101
  2. ALLEGRA [Concomitant]
  3. NASACORT AQ [Concomitant]

REACTIONS (7)
  - CONDITION AGGRAVATED [None]
  - EYE DISORDER [None]
  - FATIGUE [None]
  - MUSCULOSKELETAL STIFFNESS [None]
  - PHOTOPHOBIA [None]
  - STRABISMUS [None]
  - VISION BLURRED [None]
